FAERS Safety Report 10846740 (Version 1)
Quarter: 2015Q1

REPORT INFORMATION
  Report Type: Spontaneous
  Country: US (occurrence: US)
  Receive Date: 20150220
  Receipt Date: 20150220
  Transmission Date: 20150721
  Serious: Yes (Other)
  Sender: FDA-Public Use
  Company Number: US-BAYER-2015-023126

PATIENT
  Sex: Female

DRUGS (1)
  1. BETASERON [Suspect]
     Active Substance: INTERFERON BETA-1B
     Dosage: UNK

REACTIONS (21)
  - Multiple sclerosis relapse [None]
  - Chest pain [None]
  - Anxiety [None]
  - Hyperreflexia [None]
  - Multiple sclerosis [None]
  - Dyspnoea [None]
  - Cough [None]
  - Obesity [None]
  - Headache [None]
  - Muscular weakness [None]
  - Dysaesthesia [None]
  - Chills [None]
  - Pyrexia [None]
  - Fatigue [None]
  - Dysuria [None]
  - Gait spastic [None]
  - Vision blurred [None]
  - Paraesthesia [None]
  - Neck pain [None]
  - Hypoaesthesia [None]
  - Nausea [None]
